FAERS Safety Report 7685994-3 (Version None)
Quarter: 2011Q3

REPORT INFORMATION
  Report Type: 
  Country: None (occurrence: None)
  Receive Date: 20110816
  Receipt Date: 20110804
  Transmission Date: 20111222
  Serious: Yes (Hospitalization)
  Sender: FDA-Public Use
  Company Number: PHHY2011US11182

PATIENT
  Sex: Female
  Weight: 70.8 kg

DRUGS (14)
  1. EXJADE [Suspect]
     Indication: MYELODYSPLASTIC SYNDROME
     Dosage: 1500 MG, DAILY
     Route: 048
     Dates: start: 20101001
  2. DIFLUCAN [Concomitant]
     Dosage: 400 MG, DAILY
     Route: 048
  3. NEUPOGEN [Concomitant]
     Dosage: 480 UG, DAILY
     Route: 058
  4. EXJADE [Suspect]
     Dosage: 1500 MG, DAILY
     Route: 048
     Dates: start: 20110211
  5. VITAMIN K TAB [Suspect]
     Route: 042
  6. FOLIC ACID [Concomitant]
     Indication: FOLATE DEFICIENCY
     Dosage: 1 MG, DAILY
     Route: 048
  7. DECITABINE [Concomitant]
     Indication: MYELODYSPLASTIC SYNDROME
     Dosage: 35 MG/M2, DAILY
     Route: 042
     Dates: start: 20101230, end: 20110105
  8. FLEXERIL [Concomitant]
     Indication: MUSCLE SPASMS
     Dosage: 5 MG, TID
  9. LEVAQUIN [Concomitant]
     Dosage: 750 MG, DAILY
     Route: 048
  10. METFORMIN HCL [Concomitant]
     Indication: DIABETES MELLITUS
     Dosage: 500 MG, DAILY
     Route: 048
  11. ASPIRIN [Concomitant]
     Indication: DEEP VEIN THROMBOSIS
     Dosage: 81 MG, DAILY
     Route: 048
  12. FAMVIR [Concomitant]
     Dosage: 250 MG, BID
  13. ZOFRAN [Concomitant]
     Indication: NAUSEA
     Dosage: 4 MG, PRN
     Route: 048
  14. PREDNISONE [Concomitant]
     Dosage: 30 MG, DAILY

REACTIONS (25)
  - FUNGAL INFECTION [None]
  - MUSCULOSKELETAL CHEST PAIN [None]
  - FURUNCLE [None]
  - ACTIVATED PARTIAL THROMBOPLASTIN TIME PROLONGED [None]
  - PYREXIA [None]
  - ABSCESS [None]
  - THROMBOCYTOPENIA [None]
  - NAUSEA [None]
  - RESPIRATORY TRACT INFECTION [None]
  - BREAST MASS [None]
  - BLOOD CALCIUM DECREASED [None]
  - MALAISE [None]
  - BLOOD CHLORIDE DECREASED [None]
  - PNEUMONIA [None]
  - PANCYTOPENIA [None]
  - BLOOD SODIUM DECREASED [None]
  - WHITE BLOOD CELL COUNT DECREASED [None]
  - NEUTROPHIL COUNT DECREASED [None]
  - PROTHROMBIN TIME PROLONGED [None]
  - CELLULITIS [None]
  - BLOOD POTASSIUM DECREASED [None]
  - DYSPNOEA [None]
  - NEUTROPENIA [None]
  - HAEMOGLOBIN DECREASED [None]
  - VOMITING [None]
